FAERS Safety Report 12099743 (Version 1)
Quarter: 2016Q1

REPORT INFORMATION
  Report Type: Spontaneous
  Country: US (occurrence: None)
  Receive Date: 20160219
  Receipt Date: 20160219
  Transmission Date: 20160526
  Serious: No
  Sender: FDA-Public Use
  Company Number: None

PATIENT
  Sex: Male

DRUGS (7)
  1. NOVOLOG [Concomitant]
     Active Substance: INSULIN ASPART
  2. AMOXICILLIN. [Concomitant]
     Active Substance: AMOXICILLIN
  3. GABAPENTIN. [Concomitant]
     Active Substance: GABAPENTIN
  4. DULOXETINE. [Concomitant]
     Active Substance: DULOXETINE
  5. SUTENT [Suspect]
     Active Substance: SUNITINIB MALATE
     Indication: RENAL CANCER
     Route: 048
     Dates: start: 20150121
  6. HYDROCO/APAP [Concomitant]
     Active Substance: ACETAMINOPHEN\HYDROCODONE
  7. FUROSEMIDE. [Concomitant]
     Active Substance: FUROSEMIDE

REACTIONS (2)
  - Intentional product use issue [None]
  - Stomatitis [None]

NARRATIVE: CASE EVENT DATE: 2016
